FAERS Safety Report 18737133 (Version 1)
Quarter: 2021Q1

REPORT INFORMATION
  Report Type: Spontaneous
  Country: None (occurrence: US)
  Receive Date: 20210113
  Receipt Date: 20210113
  Transmission Date: 20210419
  Serious: No
  Sender: FDA-Public Use
  Company Number: US-VERO BIOTECH-2105300

PATIENT

DRUGS (2)
  1. GENOSYL [Suspect]
     Active Substance: NITRIC OXIDE
  2. GENOSYL [Suspect]
     Active Substance: NITRIC OXIDE
     Route: 055

REACTIONS (2)
  - Device failure [None]
  - No adverse event [None]

NARRATIVE: CASE EVENT DATE: 20201211
